FAERS Safety Report 19048788 (Version 1)
Quarter: 2021Q1

REPORT INFORMATION
  Report Type: Spontaneous
  Country: DE (occurrence: DE)
  Receive Date: 20210323
  Receipt Date: 20210323
  Transmission Date: 20210420
  Serious: Yes (Hospitalization, Other)
  Sender: FDA-Public Use
  Company Number: DE-SA-2021SA087433

PATIENT
  Sex: Male

DRUGS (5)
  1. CAPRELSA [Suspect]
     Active Substance: VANDETANIB
     Indication: METASTATIC NEOPLASM
     Dosage: UNK
     Dates: start: 202102
  2. CALCIUM [Interacting]
     Active Substance: CALCIUM
     Dosage: UNK
  3. FINASTERIDE. [Interacting]
     Active Substance: FINASTERIDE
     Dosage: UNK
  4. L?THYROXIN [LEVOTHYROXINE] [Interacting]
     Active Substance: LEVOTHYROXINE SODIUM
     Dosage: UNK
  5. METOPROLOL. [Interacting]
     Active Substance: METOPROLOL
     Dosage: UNK

REACTIONS (3)
  - Haemolytic anaemia [Recovering/Resolving]
  - Haemolysis [Recovering/Resolving]
  - Drug interaction [Unknown]

NARRATIVE: CASE EVENT DATE: 20210301
